FAERS Safety Report 14217185 (Version 1)
Quarter: 2017Q4

REPORT INFORMATION
  Report Type: Spontaneous
  Country: US (occurrence: US)
  Receive Date: 20171122
  Receipt Date: 20171122
  Transmission Date: 20180321
  Serious: No
  Sender: FDA-Public Use
  Company Number: US-LUPIN PHARMACEUTICALS INC.-E2B_00007523

PATIENT
  Sex: Female
  Weight: 104.31 kg

DRUGS (1)
  1. METFORMIN HYDROCHLORIDE EXTENDED RELEASE TABLET USP 1000 MG [Suspect]
     Active Substance: METFORMIN HYDROCHLORIDE
     Indication: BLOOD GLUCOSE INCREASED
     Dosage: 1000 MG,BID,
     Route: 048

REACTIONS (4)
  - Product substitution issue [None]
  - Blood glucose increased [None]
  - Drug effect incomplete [Unknown]
  - Glycosylated haemoglobin increased [None]
